FAERS Safety Report 11328231 (Version 1)
Quarter: 2015Q3

REPORT INFORMATION
  Report Type: Spontaneous
  Country: US (occurrence: US)
  Receive Date: 20150731
  Receipt Date: 20150731
  Transmission Date: 20151125
  Serious: No
  Sender: FDA-Public Use
  Company Number: US-TAKEDA-2014TUS006718

PATIENT
  Age: 85 Year
  Sex: Female
  Weight: 85.71 kg

DRUGS (3)
  1. DIOVAN [Concomitant]
     Active Substance: VALSARTAN
  2. COLCRYS [Suspect]
     Active Substance: COLCHICINE
     Dosage: 1 TABLET, QD
     Route: 048
  3. COLCRYS [Suspect]
     Active Substance: COLCHICINE
     Indication: GOUT
     Dosage: 1 DF, EVERY 12 HOURS
     Route: 048
     Dates: start: 20140711

REACTIONS (1)
  - Diarrhoea [Unknown]

NARRATIVE: CASE EVENT DATE: 20140714
